FAERS Safety Report 12098550 (Version 1)
Quarter: 2016Q1

REPORT INFORMATION
  Report Type: Spontaneous
  Country: US (occurrence: US)
  Receive Date: 20160222
  Receipt Date: 20160222
  Transmission Date: 20160526
  Serious: Yes (Hospitalization)
  Sender: FDA-Public Use
  Company Number: US-BEH-2016058809

PATIENT
  Sex: Female
  Weight: 62 kg

DRUGS (20)
  1. HIZENTRA [Suspect]
     Active Substance: HUMAN IMMUNOGLOBULIN G
     Route: 058
  2. PLAQUENIL [Concomitant]
     Active Substance: HYDROXYCHLOROQUINE SULFATE
  3. HIZENTRA [Suspect]
     Active Substance: HUMAN IMMUNOGLOBULIN G
     Indication: IMMUNODEFICIENCY COMMON VARIABLE
     Route: 058
  4. ACETAMINOPHEN. [Concomitant]
     Active Substance: ACETAMINOPHEN
  5. NORVASC [Concomitant]
     Active Substance: AMLODIPINE BESYLATE
  6. BIOTIN [Concomitant]
     Active Substance: BIOTIN
  7. MELOXICAM. [Concomitant]
     Active Substance: MELOXICAM
  8. MAGNESIUM [Concomitant]
     Active Substance: MAGNESIUM
  9. FLEXERIL [Suspect]
     Active Substance: CYCLOBENZAPRINE HYDROCHLORIDE
  10. DIPHENHYDRAMINE. [Concomitant]
     Active Substance: DIPHENHYDRAMINE
  11. CEVIMELINE. [Concomitant]
     Active Substance: CEVIMELINE
  12. PANTOPRAZOLE [Concomitant]
     Active Substance: PANTOPRAZOLE SODIUM
  13. PROAIR HFA [Concomitant]
     Active Substance: ALBUTEROL SULFATE
  14. ASPIRIN. [Concomitant]
     Active Substance: ASPIRIN
  15. CARVEDILOL. [Concomitant]
     Active Substance: CARVEDILOL
  16. N-ACETYL-L-CYSTEINE [Concomitant]
  17. HIZENTRA [Suspect]
     Active Substance: HUMAN IMMUNOGLOBULIN G
     Route: 058
  18. EPIPEN [Concomitant]
     Active Substance: EPINEPHRINE
  19. HYDROXYCHLOROQUINE [Concomitant]
     Active Substance: HYDROXYCHLOROQUINE
  20. SINGULAIR [Concomitant]
     Active Substance: MONTELUKAST SODIUM

REACTIONS (1)
  - Transient ischaemic attack [Unknown]
